FAERS Safety Report 4909260-1 (Version None)
Quarter: 2006Q1

REPORT INFORMATION
  Report Type: 
  Country: None (occurrence: None)
  Receive Date: 20060208
  Receipt Date: 20060208
  Transmission Date: 20060701
  Serious: No
  Sender: FDA-Public Use
  Company Number: None

PATIENT
  Age: 33 Year
  Sex: Female
  Weight: 81.6475 kg

DRUGS (2)
  1. OXYCONTIN [Suspect]
     Indication: CERVICOBRACHIAL SYNDROME
     Dosage: 40 MG BID
     Dates: start: 20051201, end: 20060101
  2. OXYCONTIN [Suspect]
     Indication: LUMBAR RADICULOPATHY
     Dosage: 40 MG BID
     Dates: start: 20051201, end: 20060101

REACTIONS (1)
  - FLUID RETENTION [None]
